FAERS Safety Report 21312934 (Version 2)
Quarter: 2022Q4

REPORT INFORMATION
  Report Type: Other
  Country: US (occurrence: US)
  Receive Date: 20220909
  Receipt Date: 20221027
  Transmission Date: 20230113
  Serious: No
  Sender: FDA-Public Use
  Company Number: US-Covis Pharma GmbH-2022COV02659

PATIENT
  Age: 27 Year
  Sex: Female
  Weight: 72.640 kg

DRUGS (5)
  1. MAKENA [Suspect]
     Active Substance: HYDROXYPROGESTERONE CAPROATE
     Indication: Premature delivery
     Route: 058
     Dates: start: 20220623, end: 20220717
  2. MAKENA [Suspect]
     Active Substance: HYDROXYPROGESTERONE CAPROATE
     Indication: Premature delivery
  3. Iron tablets [Concomitant]
     Indication: Product used for unknown indication
     Dosage: 1 CAPSULE EVERY DAY BY ORAL ROUTE
  4. Vitafol-One [Concomitant]
     Indication: Product used for unknown indication
     Dosage: TAKE 1 CAPSULE EVERY DAY BY ORAL ROUTE
  5. VITAMINS [Concomitant]
     Active Substance: VITAMINS

REACTIONS (5)
  - Viral infection [Recovered/Resolved]
  - Anaemia [Recovered/Resolved]
  - Injection site pain [Recovered/Resolved]
  - Injection site pruritus [Recovered/Resolved]
  - Product administration error [Unknown]

NARRATIVE: CASE EVENT DATE: 20220101
